FAERS Safety Report 6187127-1 (Version None)
Quarter: 2009Q2

REPORT INFORMATION
  Report Type: 
  Country: None (occurrence: None)
  Receive Date: 20090512
  Receipt Date: 20090430
  Transmission Date: 20091009
  Serious: Yes (Hospitalization)
  Sender: FDA-Public Use
  Company Number: US-BAYER-200918830GPV

PATIENT
  Age: 41 Year
  Sex: Female

DRUGS (4)
  1. ALEMTUZUMAB [Suspect]
     Indication: MULTIPLE SCLEROSIS
     Dosage: TOTAL DAILY DOSE: 12 MG
     Route: 042
     Dates: start: 20080407, end: 20080411
  2. ALEMTUZUMAB [Suspect]
     Dosage: TOTAL DAILY DOSE: 12 MG
     Route: 042
     Dates: start: 20090414, end: 20090416
  3. CETIRIZINE [Concomitant]
     Indication: RHINITIS SEASONAL
     Route: 065
     Dates: start: 20090414, end: 20090414
  4. METHYLPREDNISOLONE 4MG TAB [Concomitant]
     Indication: PREMEDICATION
     Route: 065
     Dates: start: 20090414

REACTIONS (1)
  - BRAIN STEM SYNDROME [None]
